FAERS Safety Report 7230329-3 (Version None)
Quarter: 2011Q1

REPORT INFORMATION
  Report Type: 
  Country: None (occurrence: None)
  Receive Date: 20110118
  Receipt Date: 20110110
  Transmission Date: 20110831
  Serious: No
  Sender: FDA-Public Use
  Company Number: US-PFIZER INC-2011006298

PATIENT
  Sex: Female
  Weight: 49.887 kg

DRUGS (3)
  1. LYRICA [Suspect]
     Indication: PAIN
  2. WARFARIN [Concomitant]
     Indication: ATRIAL FIBRILLATION
     Dosage: UNK
  3. LYRICA [Suspect]
     Indication: OSTEOPOROSIS
     Dosage: 75 MG, DAILY
     Route: 048
     Dates: start: 20110107

REACTIONS (2)
  - BLOOD BLISTER [None]
  - GLOSSODYNIA [None]
